FAERS Safety Report 8157910-1 (Version None)
Quarter: 2012Q1

REPORT INFORMATION
  Report Type: 
  Country: None (occurrence: None)
  Receive Date: 20120222
  Receipt Date: 20120214
  Transmission Date: 20120608
  Serious: Yes (Other)
  Sender: FDA-Public Use
  Company Number: PHHY2012BR005596

PATIENT
  Age: 88 Year
  Sex: Female

DRUGS (8)
  1. MEMANTINE HYDROCHLORIDE [Concomitant]
     Indication: DEMENTIA ALZHEIMER'S TYPE
     Dosage: 10 MG, ONCE OR TWICE A DAY
     Dates: start: 20110501
  2. EXELON [Suspect]
     Indication: DEMENTIA ALZHEIMER'S TYPE
     Dosage: 9.5 MG/24 HOURS
     Route: 062
  3. AAS INFANTIL [Concomitant]
     Dosage: 1 DF, UNK
  4. GLIMEPIRIDE [Concomitant]
     Indication: DIABETES MELLITUS
     Dosage: 2 DF, UNK
  5. METFORMIN HYDROCHLORIDE [Concomitant]
     Indication: DIABETES MELLITUS
     Dosage: 1 DF, UNK
  6. AMLODIPINE BESYLATE [Concomitant]
     Indication: BLOOD PRESSURE
     Dosage: 1 DF, UNK
  7. PRESSOTEC [Concomitant]
     Indication: BLOOD PRESSURE
     Dosage: 1 DF, UNK
  8. ATENOLOL [Concomitant]
     Indication: BLOOD PRESSURE
     Dosage: 1 DF, IN MORNING

REACTIONS (2)
  - AGITATION [None]
  - SUICIDAL IDEATION [None]
